FAERS Safety Report 11814543 (Version 1)
Quarter: 2015Q4

REPORT INFORMATION
  Report Type: Spontaneous
  Country: US (occurrence: US)
  Receive Date: 20151209
  Receipt Date: 20151209
  Transmission Date: 20160305
  Serious: Yes (Other)
  Sender: FDA-Public Use
  Company Number: US-MEDTRONIC-1045253

PATIENT
  Sex: Female

DRUGS (1)
  1. LIORESAL [Suspect]
     Active Substance: BACLOFEN
     Route: 037
     Dates: start: 20151110, end: 20151110

REACTIONS (3)
  - Personality change [Unknown]
  - Mental disorder [Unknown]
  - Schizophrenia [Unknown]

NARRATIVE: CASE EVENT DATE: 20151120
